FAERS Safety Report 12169864 (Version 3)
Quarter: 2016Q2

REPORT INFORMATION
  Report Type: Spontaneous
  Country: JP (occurrence: JP)
  Receive Date: 20160310
  Receipt Date: 20160426
  Transmission Date: 20160815
  Serious: Yes (Other)
  Sender: FDA-Public Use
  Company Number: JP-AMGEN-JPNSP2016030170

PATIENT
  Age: 37 Year
  Sex: Male
  Weight: 58 kg

DRUGS (10)
  1. BRIPLATIN [Concomitant]
     Active Substance: CISPLATIN
     Indication: RENAL CELL CARCINOMA
     Dosage: 90 MG, QD
     Route: 042
     Dates: start: 20160227, end: 20160227
  2. MANNITOL. [Concomitant]
     Active Substance: MANNITOL
     Indication: ANTIEMETIC SUPPORTIVE CARE
     Dosage: 300 ML, QD
     Route: 042
     Dates: start: 20160227, end: 20160227
  3. FUROSEMIDE. [Concomitant]
     Active Substance: FUROSEMIDE
     Indication: POLYURIA
     Dosage: 20 MG, QD
     Route: 042
     Dates: start: 20160227, end: 20160227
  4. EMEND [Concomitant]
     Active Substance: APREPITANT
     Dosage: 80 MG, QD
     Route: 048
     Dates: start: 20160227, end: 20160228
  5. G-LASTA [Suspect]
     Active Substance: PEGFILGRASTIM
     Indication: COLONY STIMULATING FACTOR PROPHYLAXIS
     Dosage: 3.6 MG, QD
     Route: 058
     Dates: start: 20160228, end: 20160228
  6. EMEND [Concomitant]
     Active Substance: APREPITANT
     Indication: ANTIEMETIC SUPPORTIVE CARE
     Dosage: 120 MG, QD
     Route: 048
     Dates: start: 20160226, end: 20160226
  7. DECADRON                           /00016002/ [Concomitant]
     Active Substance: DEXAMETHASONE
     Indication: ANTIEMETIC SUPPORTIVE CARE
     Dosage: 6.6 MG, QD
     Route: 042
     Dates: start: 20160226, end: 20160229
  8. ELIETEN                            /00041901/ [Concomitant]
     Active Substance: METOCLOPRAMIDE
     Indication: ANTIEMETIC SUPPORTIVE CARE
     Dosage: 5 MG, QD
     Route: 048
     Dates: start: 20160228, end: 20160228
  9. GRANISETRON [Concomitant]
     Active Substance: GRANISETRON
     Indication: ANTIEMETIC SUPPORTIVE CARE
     Dosage: 3 MG, QD
     Route: 042
     Dates: start: 20160227, end: 20160227
  10. GEMCITABINE [Concomitant]
     Active Substance: GEMCITABINE\GEMCITABINE HYDROCHLORIDE
     Indication: RENAL CELL CARCINOMA
     Dosage: 1660 MG, QD
     Route: 042
     Dates: start: 20160226, end: 20160226

REACTIONS (1)
  - Anaphylactoid reaction [Recovering/Resolving]

NARRATIVE: CASE EVENT DATE: 20160228
